FAERS Safety Report 25690992 (Version 1)
Quarter: 2025Q3

REPORT INFORMATION
  Report Type: Spontaneous
  Country: KR (occurrence: KR)
  Receive Date: 20250818
  Receipt Date: 20250818
  Transmission Date: 20251021
  Serious: Yes (Other)
  Sender: MACLEODS
  Company Number: KR-MACLEODS PHARMA-MAC2016003113

PATIENT

DRUGS (1)
  1. SILDENAFIL [Suspect]
     Active Substance: SILDENAFIL
     Indication: Product used for unknown indication
     Route: 065

REACTIONS (7)
  - Colour blindness [Recovered/Resolved]
  - Visual impairment [Recovered/Resolved]
  - Retinogram abnormal [Recovered/Resolved]
  - Visual field defect [Recovered/Resolved]
  - Retinal toxicity [Unknown]
  - Intentional overdose [Unknown]
  - Vision blurred [Recovered/Resolved]
